FAERS Safety Report 14928637 (Version 1)
Quarter: 2018Q2

REPORT INFORMATION
  Report Type: Spontaneous
  Country: DE (occurrence: DE)
  Receive Date: 20180523
  Receipt Date: 20180523
  Transmission Date: 20180711
  Serious: Yes (Hospitalization)
  Sender: FDA-Public Use
  Company Number: DE-PFIZER INC-2018205753

PATIENT
  Age: 81 Year
  Sex: Female

DRUGS (6)
  1. VOLTAREN RESINAT [Concomitant]
     Active Substance: DICLOFENAC
     Dosage: 0-0-1, PROLONGED RELEASE CAPSULES
     Route: 048
  2. FENTANYL. [Suspect]
     Active Substance: FENTANYL
     Dosage: 12 UG, EVERY 3 DAYS, PATCH TRANSDERMAL
     Route: 003
  3. VITAMIN D2 [Concomitant]
     Active Substance: ERGOCALCIFEROL
     Dosage: 1-0-0
     Route: 048
  4. OMEPRAZOL [Concomitant]
     Active Substance: OMEPRAZOLE
     Dosage: 20 MG, 1-0-0, CAPSULES
     Route: 048
  5. PREDNISOLONE. [Concomitant]
     Active Substance: PREDNISOLONE
     Dosage: 4 MG, 1-0-0, TABLETS
     Route: 048
  6. ESTRADOT [Concomitant]
     Active Substance: ESTRADIOL
     Dosage: 1 DF, EVERY 4 DAYS, PATCH TRANSDERMAL
     Route: 003

REACTIONS (6)
  - Muscular weakness [Unknown]
  - Tremor [Unknown]
  - Dry mouth [Unknown]
  - Nausea [Unknown]
  - Dizziness [Unknown]
  - Pain [Unknown]
